FAERS Safety Report 8138931-1 (Version None)
Quarter: 2012Q1

REPORT INFORMATION
  Report Type: 
  Country: None (occurrence: None)
  Receive Date: 20120215
  Receipt Date: 20120213
  Transmission Date: 20120608
  Serious: Yes (Other)
  Sender: FDA-Public Use
  Company Number: CA-BAYER-2012-014725

PATIENT
  Age: 40 Year
  Sex: Female
  Weight: 18.141 kg

DRUGS (2)
  1. VICKS DAYQUIL [PARACETAMOL,PSEUDOEPHEDRINE HYDROCHLORIDE] [Concomitant]
  2. INTERFERON BETA-1B [Suspect]
     Dosage: 0.25 MG, UNK
     Route: 058
     Dates: start: 20110201

REACTIONS (6)
  - INJECTION SITE ERYTHEMA [None]
  - EAR DISCOMFORT [None]
  - OTORRHOEA [None]
  - INJECTION SITE REACTION [None]
  - MULTIPLE SCLEROSIS RELAPSE [None]
  - ANAEMIA [None]
